FAERS Safety Report 10076625 (Version 2)
Quarter: 2014Q2

REPORT INFORMATION
  Report Type: Spontaneous
  Country: NL (occurrence: NL)
  Receive Date: 20140414
  Receipt Date: 20140414
  Transmission Date: 20141212
  Serious: Yes (Other)
  Sender: FDA-Public Use
  Company Number: NL-INCYTE CORPORATION-2014IN000720

PATIENT
  Sex: Female

DRUGS (1)
  1. JAKAVI [Suspect]
     Indication: MYELOFIBROSIS
     Dosage: 2 DF
     Route: 065

REACTIONS (3)
  - Cardiac failure [Unknown]
  - Dyspnoea [Recovered/Resolved]
  - Anaemia [Unknown]
